FAERS Safety Report 6608487-0 (Version None)
Quarter: 2010Q1

REPORT INFORMATION
  Report Type: 
  Country: None (occurrence: None)
  Receive Date: 20100226
  Receipt Date: 20100226
  Transmission Date: 20100710
  Serious: Yes (Other)
  Sender: FDA-Public Use
  Company Number: None

PATIENT
  Age: 29 Year
  Sex: Female
  Weight: 102.0593 kg

DRUGS (5)
  1. AMITRIPTYLINE HCL [Suspect]
     Indication: DEPRESSION
     Dosage: 100 MG ONCE DAILY PO
     Route: 048
     Dates: start: 20100201, end: 20100222
  2. AMITRIPTYLINE HCL [Suspect]
     Indication: FIBROMYALGIA
     Dosage: 100 MG ONCE DAILY PO
     Route: 048
     Dates: start: 20100201, end: 20100222
  3. DULOXETINE HYDROCHLORIDE [Concomitant]
  4. PRAMIPEXOLE DIHYDROCHLORIDE [Concomitant]
  5. SEASONIQUE LEVOTHYROXINE [Concomitant]

REACTIONS (1)
  - URINARY RETENTION [None]
